FAERS Safety Report 10273705 (Version 1)
Quarter: 2014Q1

REPORT INFORMATION
  Report Type: Spontaneous
  Country: US (occurrence: None)
  Receive Date: 20140306
  Receipt Date: 20140306
  Transmission Date: 20141002
  Serious: Yes (Disabling)
  Sender: FDA-Public Use
  Company Number: 163-21880-13092398

PATIENT
  Age: 65 Year
  Sex: Female

DRUGS (9)
  1. REVLIMID [Suspect]
     Indication: PLASMA CELL MYELOMA
     Dosage: 15 MG, 21 IN 28 D, PO
     Route: 048
     Dates: start: 20120120, end: 20130724
  2. LASIX(FUROSEMIDE) [Concomitant]
  3. LIPITOR(ATORVASTATIN) [Concomitant]
  4. HUMALOG(INSULIN LISPRO) [Concomitant]
  5. LANTUS (INSULIN GLARGINE) [Concomitant]
  6. METOPROLOL(METOPROLOL) [Concomitant]
  7. AMLODIPINE(AMLODIPINE) [Concomitant]
  8. ACYCLOVIR(ACICLOVIR) [Concomitant]
  9. FLUCONAZOLE(FLUCONAZOLE) [Concomitant]

REACTIONS (2)
  - Plasma cell myeloma [None]
  - Drug intolerance [None]
